FAERS Safety Report 4944020-7 (Version None)
Quarter: 2006Q1

REPORT INFORMATION
  Report Type: 
  Country: None (occurrence: None)
  Receive Date: 20060310
  Receipt Date: 20060309
  Transmission Date: 20060701
  Serious: Yes (Hospitalization)
  Sender: FDA-Public Use
  Company Number: MED000016

PATIENT
  Age: 14 Month
  Sex: Male

DRUGS (1)
  1. DEXTROSE 5% AND SODIUM CHLORIDE W/ POTASSIUM CHLORIDE [Suspect]
     Indication: VOMITING
     Dosage: 40 ML; EVERY HR; IV
     Route: 042
     Dates: start: 20050101

REACTIONS (3)
  - INFUSION SITE PAIN [None]
  - INFUSION SITE REACTION [None]
  - THERMAL BURN [None]
